FAERS Safety Report 12634668 (Version 1)
Quarter: 2016Q3

REPORT INFORMATION
  Report Type: Spontaneous
  Country: US (occurrence: US)
  Receive Date: 20160808
  Receipt Date: 20160808
  Transmission Date: 20161109
  Serious: Yes (Other)
  Sender: FDA-Public Use
  Company Number: US-EDGEWELL PERSONAL CARE, LLC-1055941

PATIENT
  Sex: Female

DRUGS (1)
  1. BANANA BOAT SPORT PERFORMANCE WITH POWERSTAY TECHNOLOGY BROAD SPECTRUM SPF15 [Suspect]
     Active Substance: AVOBENZONE\HOMOSALATE\OCTOCRYLENE
     Indication: SUNBURN
     Route: 061
     Dates: start: 20160726, end: 20160728

REACTIONS (1)
  - Asthma [Recovered/Resolved]

NARRATIVE: CASE EVENT DATE: 20160728
